FAERS Safety Report 23391210 (Version 2)
Quarter: 2024Q2

REPORT INFORMATION
  Report Type: Spontaneous
  Country: DE (occurrence: DE)
  Receive Date: 20240111
  Receipt Date: 20240624
  Transmission Date: 20240716
  Serious: Yes (Other)
  Sender: FDA-Public Use
  Company Number: None

PATIENT
  Age: 59 Year
  Sex: Male
  Weight: 83 kg

DRUGS (4)
  1. CIPROFLOXACIN [Suspect]
     Active Substance: CIPROFLOXACIN
     Indication: Diverticulitis
     Dosage: 750 MILLIGRAM, BID (PLANNED FOR 10 DAYS (ABORTED PREMATURELY))
     Route: 048
     Dates: start: 20120112, end: 20120115
  2. MARCUMAR [Concomitant]
     Active Substance: PHENPROCOUMON
     Indication: Thrombosis
     Dosage: 3 MILLIGRAM, QD
     Route: 048
     Dates: start: 200701
  3. MARCUMAR [Concomitant]
     Active Substance: PHENPROCOUMON
     Indication: Activated protein C resistance
  4. OMEPRAZOLE [Concomitant]
     Active Substance: DONEPEZIL HYDROCHLORIDE\OMEPRAZOLE\OMEPRAZOLE MAGNESIUM
     Indication: Abdominal discomfort
     Dosage: 20 MILLIGRAM, QD
     Route: 048
     Dates: start: 200602, end: 201408

REACTIONS (10)
  - Altered state of consciousness [Recovered/Resolved]
  - Hallucination [Recovered/Resolved]
  - Polyneuropathy [Not Recovered/Not Resolved]
  - Asthenia [Recovered/Resolved with Sequelae]
  - Anxiety disorder [Recovered/Resolved]
  - Gait disturbance [Recovered/Resolved with Sequelae]
  - Tendonitis [Recovered/Resolved]
  - Pain in extremity [Unknown]
  - Myalgia [Unknown]
  - Hypoaesthesia [Not Recovered/Not Resolved]

NARRATIVE: CASE EVENT DATE: 20120112
